FAERS Safety Report 9331175 (Version 1)
Quarter: 2013Q2

REPORT INFORMATION
  Report Type: Spontaneous
  Country: GB (occurrence: GB)
  Receive Date: 20130605
  Receipt Date: 20130605
  Transmission Date: 20140414
  Serious: Yes (Other)
  Sender: FDA-Public Use
  Company Number: PHHY2013GB055104

PATIENT
  Age: 58 Year
  Sex: Male
  Weight: 97 kg

DRUGS (2)
  1. CO-AMOXICLAV [Suspect]
     Indication: ACUTE TONSILLITIS
     Dosage: 1 DF, TID
     Route: 048
     Dates: start: 20130408, end: 20130415
  2. PRAVASTATIN [Concomitant]
     Dosage: 40 MG, QD

REACTIONS (3)
  - Jaundice [Recovering/Resolving]
  - Malaise [Unknown]
  - Liver function test abnormal [Recovering/Resolving]
